FAERS Safety Report 20377922 (Version 5)
Quarter: 2022Q2

REPORT INFORMATION
  Report Type: Spontaneous
  Country: GB (occurrence: GB)
  Receive Date: 20220126
  Receipt Date: 20220606
  Transmission Date: 20220721
  Serious: Yes (Hospitalization, Other)
  Sender: FDA-Public Use
  Company Number: GB-ALNYLAM PHARMACEUTICALS, INC.-ALN-2022-000255

PATIENT

DRUGS (1)
  1. ONPATTRO [Suspect]
     Active Substance: PATISIRAN SODIUM
     Indication: Amyloidosis
     Dosage: 30 MILLIGRAM, Q3W
     Route: 042
     Dates: start: 20220104

REACTIONS (7)
  - Illness [Unknown]
  - Prostate cancer [Unknown]
  - Dyspnoea [Unknown]
  - Wheezing [Unknown]
  - Rales [Unknown]
  - Neuropathy peripheral [Unknown]
  - Product dose omission issue [Unknown]
